FAERS Safety Report 8150200 (Version 2)
Quarter: 2013Q1

REPORT INFORMATION
  Report Type: Spontaneous
  Country: US (occurrence: US)
  Receive Date: 20110922
  Receipt Date: 20130215
  Transmission Date: 20140127
  Serious: Yes (Other)
  Sender: FDA-Public Use
  Company Number: US-ASTRAZENECA-2011SE12525

PATIENT
  Sex: Female

DRUGS (9)
  1. SEROQUEL [Suspect]
     Route: 048
     Dates: start: 20090829
  2. LORTAB [Concomitant]
  3. MOBIC [Concomitant]
  4. ALPRAZOLAM [Concomitant]
  5. MIRAPEX [Concomitant]
  6. TIZANIDINE [Concomitant]
  7. TRAMADOL [Concomitant]
  8. AMITRIPTYLINE [Concomitant]
  9. LYRICA [Concomitant]

REACTIONS (4)
  - Pancreatitis [Unknown]
  - Diabetic coma [Unknown]
  - Type 2 diabetes mellitus [Unknown]
  - Drug hypersensitivity [Unknown]
